FAERS Safety Report 5666174-X (Version None)
Quarter: 2008Q1

REPORT INFORMATION
  Report Type: 
  Country: None (occurrence: None)
  Receive Date: 20080314
  Receipt Date: 20030317
  Transmission Date: 20080703
  Serious: No
  Sender: FDA-Public Use
  Company Number: US-ABBOTT-07P-163-0429991-00

PATIENT
  Sex: Female

DRUGS (3)
  1. HUMIRA [Suspect]
  2. METHOTREXATE SODIUM [Concomitant]
     Indication: DRUG USE FOR UNKNOWN INDICATION
  3. PREDNISONE ACETATE [Concomitant]
     Indication: DRUG USE FOR UNKNOWN INDICATION

REACTIONS (7)
  - ALOPECIA [None]
  - ANOREXIA [None]
  - FATIGUE [None]
  - GASTROINTESTINAL DISORDER [None]
  - NAUSEA [None]
  - RASH GENERALISED [None]
  - RHEUMATOID ARTHRITIS [None]
